FAERS Safety Report 6007749-8 (Version None)
Quarter: 2008Q4

REPORT INFORMATION
  Report Type: 
  Country: None (occurrence: None)
  Receive Date: 20081217
  Receipt Date: 20080711
  Transmission Date: 20090506
  Serious: No
  Sender: FDA-Public Use
  Company Number: US-ASTRAZENECA-2008UW10807

PATIENT
  Sex: Female

DRUGS (2)
  1. CRESTOR [Suspect]
     Route: 048
     Dates: start: 20080524
  2. LIP CREAM [Concomitant]

REACTIONS (3)
  - DYSPNOEA [None]
  - FEELING JITTERY [None]
  - PALPITATIONS [None]
